FAERS Safety Report 17244520 (Version 2)
Quarter: 2020Q1

REPORT INFORMATION
  Report Type: Spontaneous
  Country: BE (occurrence: BE)
  Receive Date: 20200107
  Receipt Date: 20200110
  Transmission Date: 20200409
  Serious: Yes (Death, Life-Threatening, Hospitalization, Other)
  Sender: FDA-Public Use
  Company Number: BE-009507513-1911BEL003479

PATIENT
  Age: 66 Year
  Sex: Female
  Weight: 63 kg

DRUGS (4)
  1. ALIMTA [Concomitant]
     Active Substance: PEMETREXED DISODIUM
     Indication: NON-SMALL CELL LUNG CANCER
     Dosage: 865 MILLIGRAMS
     Route: 042
     Dates: start: 20190905, end: 20190917
  2. CISPLATIN. [Concomitant]
     Active Substance: CISPLATIN
     Indication: NON-SMALL CELL LUNG CANCER
     Dosage: 129.75 MILLIGRAMS
     Route: 042
     Dates: start: 20190906, end: 20190926
  3. CARBOPLATIN. [Concomitant]
     Active Substance: CARBOPLATIN
     Indication: NON-SMALL CELL LUNG CANCER
     Dosage: 374.05 MILLIGRAMS
     Route: 042
     Dates: start: 20190926, end: 20191018
  4. KEYTRUDA [Suspect]
     Active Substance: PEMBROLIZUMAB
     Indication: NON-SMALL CELL LUNG CANCER STAGE IV
     Dosage: 200 MILLIGRAM, Q3W
     Route: 042
     Dates: start: 20190905, end: 20191007

REACTIONS (4)
  - Acute kidney injury [Unknown]
  - Mucosal inflammation [Unknown]
  - Haemophagocytic lymphohistiocytosis [Fatal]
  - Peripheral venous disease [Unknown]

NARRATIVE: CASE EVENT DATE: 2019
